FAERS Safety Report 16342473 (Version 1)
Quarter: 2019Q2

REPORT INFORMATION
  Report Type: Spontaneous
  Country: TR (occurrence: TR)
  Receive Date: 20190522
  Receipt Date: 20190522
  Transmission Date: 20190711
  Serious: Yes (Other)
  Sender: FDA-Public Use
  Company Number: TR-TOLMAR, INC.-TOLG20192255

PATIENT
  Age: 42 Year
  Sex: Female

DRUGS (2)
  1. DICLOFENAC SODIUM. [Suspect]
     Active Substance: DICLOFENAC SODIUM
     Indication: MIGRAINE
     Dosage: UNKNOWN
     Route: 030
  2. METOCLOPRAMIDE. [Concomitant]
     Active Substance: METOCLOPRAMIDE
     Indication: MIGRAINE
     Dosage: UNKNOWN
     Route: 030

REACTIONS (12)
  - Skin ulcer [Recovered/Resolved with Sequelae]
  - Scar [Not Recovered/Not Resolved]
  - Skin bacterial infection [Recovered/Resolved with Sequelae]
  - Pain [Recovered/Resolved with Sequelae]
  - Eschar [Recovered/Resolved with Sequelae]
  - Panniculitis [Recovered/Resolved with Sequelae]
  - Product use in unapproved indication [None]
  - Embolia cutis medicamentosa [Recovered/Resolved with Sequelae]
  - Skin plaque [Recovered/Resolved with Sequelae]
  - Skin oedema [Recovered/Resolved with Sequelae]
  - Erythema [Recovered/Resolved with Sequelae]
  - Skin induration [Recovered/Resolved with Sequelae]
